FAERS Safety Report 10134437 (Version 1)
Quarter: 2014Q2

REPORT INFORMATION
  Report Type: Spontaneous
  Country: US (occurrence: US)
  Receive Date: 20140428
  Receipt Date: 20140428
  Transmission Date: 20141212
  Serious: No
  Sender: FDA-Public Use
  Company Number: US-PFIZER INC-2014113814

PATIENT
  Sex: Female

DRUGS (2)
  1. AMOXICILLIN [Suspect]
  2. TETRACYCLINE HCL [Suspect]

REACTIONS (1)
  - Drug hypersensitivity [Not Recovered/Not Resolved]
